FAERS Safety Report 13441512 (Version 1)
Quarter: 2017Q2

REPORT INFORMATION
  Report Type: Spontaneous
  Country: CN (occurrence: CN)
  Receive Date: 20170414
  Receipt Date: 20170414
  Transmission Date: 20170830
  Serious: Yes (Hospitalization, Disabling, Other)
  Sender: FDA-Public Use
  Company Number: CN-SUN PHARMACEUTICAL INDUSTRIES LTD-2017R1-137817

PATIENT
  Age: 48 Year
  Sex: Female

DRUGS (4)
  1. DOCETAXEL. [Suspect]
     Active Substance: DOCETAXEL
     Indication: ENDOMETRIAL CANCER STAGE III
     Dosage: (70 MG/M2) AT 3 WEEK INTERVALS
     Route: 065
  2. CISPLATIN. [Suspect]
     Active Substance: CISPLATIN
     Indication: ENDOMETRIAL CANCER STAGE III
     Dosage: ((50 MG/M2) AT 3 WEEK INTERVALS
     Route: 065
  3. LOBAPLATIN [Suspect]
     Active Substance: LOBAPLATIN
     Indication: ENDOMETRIAL CANCER STAGE III
     Dosage: 25 MG/M2
     Route: 065
  4. ACARBOSE. [Concomitant]
     Active Substance: ACARBOSE
     Indication: TYPE 2 DIABETES MELLITUS
     Dosage: 50 MG, DAILY
     Route: 065

REACTIONS (2)
  - Retinitis pigmentosa [Not Recovered/Not Resolved]
  - Blindness [Not Recovered/Not Resolved]
